FAERS Safety Report 9360941 (Version 1)
Quarter: 2013Q2

REPORT INFORMATION
  Report Type: Report from Study
  Country: US (occurrence: US)
  Receive Date: 20130621
  Receipt Date: 20130621
  Transmission Date: 20140414
  Serious: Yes (Other)
  Sender: FDA-Public Use
  Company Number: US-ABBOTT-13P-163-1104599-00

PATIENT
  Age: 56 Year
  Sex: Female

DRUGS (5)
  1. HUMIRA [Suspect]
     Indication: RHEUMATOID ARTHRITIS
     Dates: start: 2002
  2. METHOTREXATE [Concomitant]
     Indication: RHEUMATOID ARTHRITIS
  3. CELEXA [Concomitant]
     Indication: ANXIETY
  4. PROCARDIA [Concomitant]
     Indication: RAYNAUD^S PHENOMENON
  5. CRESTOR [Concomitant]
     Indication: HYPERLIPIDAEMIA

REACTIONS (5)
  - Incision site haematoma [Recovered/Resolved]
  - Procedural haemorrhage [Recovered/Resolved]
  - Fibrocystic breast disease [Recovered/Resolved]
  - Incision site oedema [Recovered/Resolved]
  - Impaired healing [Recovered/Resolved]
